FAERS Safety Report 17450982 (Version 2)
Quarter: 2020Q1

REPORT INFORMATION
  Report Type: Report from Study
  Country: TW (occurrence: TW)
  Receive Date: 20200224
  Receipt Date: 20200302
  Transmission Date: 20200409
  Serious: Yes (Hospitalization, Other)
  Sender: FDA-Public Use
  Company Number: TW-BAYER-2019-233967

PATIENT
  Age: 89 Year
  Sex: Female

DRUGS (1)
  1. ADEMPAS [Suspect]
     Active Substance: RIOCIGUAT
     Indication: PULMONARY HYPERTENSION
     Dosage: 2.5 MG, TID
     Route: 048

REACTIONS (9)
  - Flatulence [Recovering/Resolving]
  - Gastric pH decreased [None]
  - Asthma [None]
  - Gastric ulcer [None]
  - Hypophagia [None]
  - Suicidal ideation [None]
  - Gastrooesophageal reflux disease [None]
  - Retching [None]
  - Weight decreased [None]

NARRATIVE: CASE EVENT DATE: 2019
